FAERS Safety Report 5159427-5 (Version None)
Quarter: 2006Q4

REPORT INFORMATION
  Report Type: 
  Country: None (occurrence: None)
  Receive Date: 20061122
  Receipt Date: 20061122
  Transmission Date: 20070319
  Serious: No
  Sender: FDA-Public Use
  Company Number: None

PATIENT
  Age: 69 Year
  Sex: Female

DRUGS (1)
  1. LINEZOLID [Suspect]
     Indication: OSTEOMYELITIS
     Dosage: 600MG BID INTRACAVERN
     Route: 017
     Dates: start: 20060421, end: 20060522

REACTIONS (1)
  - THROMBOCYTOPENIA [None]
